FAERS Safety Report 19651466 (Version 1)
Quarter: 2021Q3

REPORT INFORMATION
  Report Type: Spontaneous
  Country: SE (occurrence: SE)
  Receive Date: 20210803
  Receipt Date: 20210803
  Transmission Date: 20211014
  Serious: Yes (Death, Hospitalization, Other)
  Sender: FDA-Public Use
  Company Number: SE-ACCORD-234042

PATIENT
  Age: 68 Year
  Sex: Female
  Weight: 75.1 kg

DRUGS (44)
  1. DEXAVIT [Concomitant]
     Dates: start: 20210707, end: 20210710
  2. OXALIPLATIN. [Suspect]
     Active Substance: OXALIPLATIN
     Indication: DIFFUSE LARGE B-CELL LYMPHOMA STAGE IV
     Dosage: 182 MILLIGRAM, SINGLE
     Route: 042
     Dates: start: 20210429, end: 20210429
  3. OXALIPLATIN. [Suspect]
     Active Substance: OXALIPLATIN
     Indication: DIFFUSE LARGE B-CELL LYMPHOMA STAGE IV
     Dosage: 182 MILLIGRAM, SINGLE
     Route: 042
     Dates: start: 20210531, end: 20210531
  4. OXALIPLATIN. [Suspect]
     Active Substance: OXALIPLATIN
     Indication: DIFFUSE LARGE B-CELL LYMPHOMA STAGE IV
     Dosage: 187 MILLIGRAM, SINGLE
     Route: 042
     Dates: start: 20210202, end: 20210202
  5. ONDANSETRON [Concomitant]
     Active Substance: ONDANSETRON
     Dates: start: 20210517, end: 20210517
  6. PANTOPRAZOLE [Concomitant]
     Active Substance: PANTOPRAZOLE
     Dates: start: 20200511, end: 20210704
  7. UNIKALK [Concomitant]
     Dates: start: 20200402, end: 20210702
  8. SOLU?MEDROL [Concomitant]
     Active Substance: METHYLPREDNISOLONE SODIUM SUCCINATE
     Dates: start: 20210319
  9. ALLOPURINOL. [Concomitant]
     Active Substance: ALLOPURINOL
     Dates: start: 20210517, end: 20210517
  10. ACICLOVIR [Concomitant]
     Active Substance: ACYCLOVIR
     Dates: start: 20210215, end: 20210624
  11. FUROSEMIDE. [Concomitant]
     Active Substance: FUROSEMIDE
     Dates: start: 20210613, end: 20210704
  12. DUOBODY?CD3XCD20 [Suspect]
     Active Substance: EPCORITAMAB
     Indication: DIFFUSE LARGE B-CELL LYMPHOMA STAGE IV
     Dosage: FULL DOSE: 48 MILLIGRAM, WEEKLY;
     Route: 058
     Dates: start: 20210223, end: 20210507
  13. OXALIPLATIN. [Suspect]
     Active Substance: OXALIPLATIN
     Indication: DIFFUSE LARGE B-CELL LYMPHOMA STAGE IV
     Dosage: 182 MILLIGRAM, SINGLE
     Route: 042
     Dates: start: 20210517, end: 20210517
  14. CETIRIZINE [Concomitant]
     Active Substance: CETIRIZINE HYDROCHLORIDE
     Dates: start: 20210514, end: 20210531
  15. TOCILIZUMAB. [Concomitant]
     Active Substance: TOCILIZUMAB
     Dates: start: 20210707, end: 20210707
  16. GEMCITABINE/GEMCITABINE HYDROCHLORIDE [Suspect]
     Active Substance: GEMCITABINE\GEMCITABINE HYDROCHLORIDE
     Indication: DIFFUSE LARGE B-CELL LYMPHOMA STAGE IV
     Dosage: 1830 MILLIGRAM, SINGLE
     Route: 042
     Dates: start: 20210223, end: 20210223
  17. GEMCITABINE/GEMCITABINE HYDROCHLORIDE [Suspect]
     Active Substance: GEMCITABINE\GEMCITABINE HYDROCHLORIDE
     Indication: DIFFUSE LARGE B-CELL LYMPHOMA STAGE IV
     Dosage: 1820 MILLIGRAM, SINGLE
     Route: 042
     Dates: start: 20210517, end: 20210517
  18. OXALIPLATIN. [Suspect]
     Active Substance: OXALIPLATIN
     Indication: DIFFUSE LARGE B-CELL LYMPHOMA STAGE IV
     Dosage: 183 MILLIGRAM, SINGLE
     Route: 042
     Dates: start: 20210223, end: 20210223
  19. OXALIPLATIN. [Suspect]
     Active Substance: OXALIPLATIN
     Indication: DIFFUSE LARGE B-CELL LYMPHOMA STAGE IV
     Dosage: 181 MILLIGRAM, SINGLE
     Route: 042
     Dates: start: 20210413, end: 20210413
  20. GEMCITABINE/GEMCITABINE HYDROCHLORIDE [Suspect]
     Active Substance: GEMCITABINE\GEMCITABINE HYDROCHLORIDE
     Indication: DIFFUSE LARGE B-CELL LYMPHOMA STAGE IV
     Dosage: 1870 MILLIGRAM, SINGLE
     Route: 042
     Dates: start: 20210202, end: 20210202
  21. ZOPICLONE [Concomitant]
     Active Substance: ZOPICLONE
     Dates: start: 20200318, end: 20210704
  22. DIGOXIN. [Concomitant]
     Active Substance: DIGOXIN
     Dates: start: 20210705, end: 20210706
  23. FILGRASTIM [Concomitant]
     Active Substance: FILGRASTIM
     Dates: start: 20210612, end: 20210706
  24. DUOBODY?CD3XCD20 [Suspect]
     Active Substance: EPCORITAMAB
     Indication: DIFFUSE LARGE B-CELL LYMPHOMA STAGE IV
     Dosage: INTERMEDIATE DOSE: 0.8 MILLIGRAM, SINGLE;
     Route: 058
     Dates: start: 20210216, end: 20210216
  25. GEMCITABINE/GEMCITABINE HYDROCHLORIDE [Suspect]
     Active Substance: GEMCITABINE\GEMCITABINE HYDROCHLORIDE
     Indication: DIFFUSE LARGE B-CELL LYMPHOMA STAGE IV
     Dosage: 1810 MILLIGRAM, SINGLE
     Route: 042
     Dates: start: 20210413, end: 20210413
  26. GEMCITABINE/GEMCITABINE HYDROCHLORIDE [Suspect]
     Active Substance: GEMCITABINE\GEMCITABINE HYDROCHLORIDE
     Indication: DIFFUSE LARGE B-CELL LYMPHOMA STAGE IV
     Dosage: 1820 MILLIGRAM, SINGLE
     Route: 042
     Dates: start: 20210429, end: 20210429
  27. GEMCITABINE/GEMCITABINE HYDROCHLORIDE [Suspect]
     Active Substance: GEMCITABINE\GEMCITABINE HYDROCHLORIDE
     Indication: DIFFUSE LARGE B-CELL LYMPHOMA STAGE IV
     Dosage: 1820 MILLIGRAM, SINGLE
     Route: 042
     Dates: start: 20210531, end: 20210531
  28. OXALIPLATIN. [Suspect]
     Active Substance: OXALIPLATIN
     Indication: DIFFUSE LARGE B-CELL LYMPHOMA STAGE IV
     Dosage: 182 MILLIGRAM, SINGLE
     Route: 042
     Dates: start: 20210312, end: 20210312
  29. OXALIPLATIN. [Suspect]
     Active Substance: OXALIPLATIN
     Indication: DIFFUSE LARGE B-CELL LYMPHOMA STAGE IV
     Dosage: 181 MILLIGRAM, SINGLE
     Route: 042
     Dates: start: 20210326, end: 20210326
  30. COLECALCIFEROL [Concomitant]
     Active Substance: CHOLECALCIFEROL
     Dates: start: 20200408, end: 20210704
  31. KALIUMCHLORIDE [Concomitant]
     Dates: start: 20210608, end: 20210614
  32. HUMAN FIBRINOGEN [Concomitant]
     Active Substance: FIBRINOGEN HUMAN
     Dates: start: 20210707, end: 20210707
  33. SPIRONOLACTONE. [Concomitant]
     Active Substance: SPIRONOLACTONE
     Dates: start: 20210618, end: 20210630
  34. DUOBODY?CD3XCD20 [Suspect]
     Active Substance: EPCORITAMAB
     Indication: DIFFUSE LARGE B-CELL LYMPHOMA STAGE IV
     Dosage: FULL DOSE: 48 MILLIGRAM, WEEKLY;
     Route: 058
     Dates: start: 20210517, end: 20210531
  35. GEMCITABINE/GEMCITABINE HYDROCHLORIDE [Suspect]
     Active Substance: GEMCITABINE\GEMCITABINE HYDROCHLORIDE
     Indication: DIFFUSE LARGE B-CELL LYMPHOMA STAGE IV
     Dosage: 1810 MILLIGRAM, SINGLE
     Route: 042
     Dates: start: 20210326, end: 20210326
  36. PEGFILGRASTIM [Concomitant]
     Active Substance: PEGFILGRASTIM
     Dates: start: 20210520, end: 20210520
  37. DALTEPARIN [Concomitant]
     Active Substance: DALTEPARIN
     Dates: start: 20210326, end: 20210525
  38. DUOBODY?CD3XCD20 [Suspect]
     Active Substance: EPCORITAMAB
     Indication: DIFFUSE LARGE B-CELL LYMPHOMA STAGE IV
     Dosage: PRIMIMG DOSE: 0.16 MILLIGRAM, SINGLE;
     Route: 058
     Dates: start: 20210202, end: 20210202
  39. PARACETAMOL [Concomitant]
     Active Substance: ACETAMINOPHEN
     Dates: start: 20210514, end: 20210624
  40. PREDNISOLONE. [Concomitant]
     Active Substance: PREDNISOLONE
     Dates: start: 20210514, end: 20210531
  41. ACICLOVIR [Concomitant]
     Active Substance: ACYCLOVIR
     Dates: start: 20200916
  42. ATENOLOL/ATENOLOL HYDROCHLORIDE [Concomitant]
     Active Substance: ATENOLOL HYDROCHLORIDE
     Dates: start: 20210616, end: 20210704
  43. CALCIUM POLYSTYRENE SULFONATE [Concomitant]
     Active Substance: CALCIUM POLYSTYRENE SULFONATE
     Dates: start: 20210701, end: 20210704
  44. GEMCITABINE/GEMCITABINE HYDROCHLORIDE [Suspect]
     Active Substance: GEMCITABINE\GEMCITABINE HYDROCHLORIDE
     Indication: DIFFUSE LARGE B-CELL LYMPHOMA STAGE IV
     Dosage: 1820 MILLIGRAM, SINGLE
     Route: 042
     Dates: start: 20210312, end: 20210312

REACTIONS (4)
  - Ascites [Fatal]
  - Multiple organ dysfunction syndrome [Fatal]
  - Off label use [Unknown]
  - Cytokine release syndrome [Recovered/Resolved]

NARRATIVE: CASE EVENT DATE: 20210606
